FAERS Safety Report 5821731-2 (Version None)
Quarter: 2008Q3

REPORT INFORMATION
  Report Type: 
  Country: None (occurrence: None)
  Receive Date: 20080724
  Receipt Date: 20080717
  Transmission Date: 20090109
  Serious: Yes (Hospitalization)
  Sender: FDA-Public Use
  Company Number: FR-PFIZER INC-2008060213

PATIENT
  Sex: Female

DRUGS (9)
  1. TAHOR [Suspect]
     Route: 048
  2. SINTROM [Suspect]
     Route: 048
  3. TRAMADOL HYDROCHLORIDE [Suspect]
     Route: 048
  4. CORDARONE [Suspect]
     Route: 048
  5. HEPARIN SODIUM [Concomitant]
  6. ALDACTAZINE [Concomitant]
  7. BISOPROLOL FUMARATE [Concomitant]
  8. DAFLON [Concomitant]
  9. IMOVANE [Concomitant]

REACTIONS (1)
  - HAEMATOMA [None]
